FAERS Safety Report 22012660 (Version 3)
Quarter: 2025Q1

REPORT INFORMATION
  Report Type: Spontaneous
  Country: FR (occurrence: FR)
  Receive Date: 20230220
  Receipt Date: 20250102
  Transmission Date: 20250409
  Serious: Yes (Death)
  Sender: AMERICAN REGENT
  Company Number: FR-AMERICAN REGENT INC-2023000397

PATIENT
  Age: 88 Year
  Sex: Female
  Weight: 62 kg

DRUGS (1)
  1. FERINJECT [Suspect]
     Active Substance: FERRIC CARBOXYMALTOSE
     Indication: Iron deficiency anaemia
     Route: 042
     Dates: start: 20230129, end: 20230129

REACTIONS (4)
  - Myocardial infarction [Fatal]
  - Cardiac arrest [Fatal]
  - Seizure [Fatal]
  - Hypotension [Not Recovered/Not Resolved]

NARRATIVE: CASE EVENT DATE: 20230129
